FAERS Safety Report 9216100 (Version 2)
Quarter: 2013Q2

REPORT INFORMATION
  Report Type: Spontaneous
  Country: ES (occurrence: None)
  Receive Date: 20130402
  Receipt Date: 20130419
  Transmission Date: 20140414
  Serious: Yes (Hospitalization)
  Sender: FDA-Public Use
  Company Number: ES-ZYDUS-001068

PATIENT
  Age: 59 Year
  Sex: Female

DRUGS (2)
  1. TRAMADOL [Suspect]
  2. FENTANYL [Suspect]
     Route: 062

REACTIONS (8)
  - Constipation [None]
  - Gastrointestinal hypomotility [None]
  - Haemorrhoids [None]
  - Pneumonia [None]
  - Respiratory failure [None]
  - Pulmonary haemorrhage [None]
  - Constipation [None]
  - Delirium [None]
